FAERS Safety Report 18601744 (Version 3)
Quarter: 2021Q2

REPORT INFORMATION
  Report Type: Spontaneous
  Country: US (occurrence: US)
  Receive Date: 20201210
  Receipt Date: 20210420
  Transmission Date: 20210717
  Serious: Yes (Other)
  Sender: FDA-Public Use
  Company Number: US-ASTRAZENECA-2019SE10737

PATIENT
  Age: 30946 Day
  Sex: Female
  Weight: 90.7 kg

DRUGS (75)
  1. CALCIUM [Concomitant]
     Active Substance: CALCIUM
  2. ZINC. [Concomitant]
     Active Substance: ZINC
  3. ZOCOR [Concomitant]
     Active Substance: SIMVASTATIN
  4. CYMBALTA [Concomitant]
     Active Substance: DULOXETINE HYDROCHLORIDE
  5. VITAMIN D3 [Concomitant]
     Active Substance: CHOLECALCIFEROL
  6. ASPIRIN. [Concomitant]
     Active Substance: ASPIRIN
  7. AMOXICILLIN. [Concomitant]
     Active Substance: AMOXICILLIN
     Indication: INFECTION
  8. LEVOFLOXACIN. [Concomitant]
     Active Substance: LEVOFLOXACIN
     Indication: INFECTION
  9. GENTAMICIN. [Concomitant]
     Active Substance: GENTAMICIN
  10. BUDESONIDE. [Concomitant]
     Active Substance: BUDESONIDE
  11. PNEUMOVAX 23 [Concomitant]
     Active Substance: PNEUMOCOCCAL VACCINE, POLYVALENT 23
  12. VITAMIN B COMPLEX [Concomitant]
     Active Substance: CYANOCOBALAMIN\DEXPANTHENOL\NIACINAMIDE\PYRIDOXINE HYDROCHLORIDE\RIBOFLAVIN 5^-PHOSPHATE SODIUM\THIAMINE HYDROCHLORIDE\VITAMIN B COMPLEX
  13. PEPCID [Concomitant]
     Active Substance: FAMOTIDINE
  14. MUPIROCIN. [Concomitant]
     Active Substance: MUPIROCIN
  15. FLONASE [Concomitant]
     Active Substance: FLUTICASONE PROPIONATE
  16. PRILOSEC [Suspect]
     Active Substance: OMEPRAZOLE MAGNESIUM
     Indication: GASTROOESOPHAGEAL REFLUX DISEASE
     Dosage: GENERIC
     Route: 065
     Dates: start: 2000
  17. PREVACID 24 HR [Suspect]
     Active Substance: LANSOPRAZOLE
     Indication: GASTROOESOPHAGEAL REFLUX DISEASE
     Route: 065
     Dates: start: 2000
  18. PREVACID 24 HR [Suspect]
     Active Substance: LANSOPRAZOLE
     Indication: GASTROOESOPHAGEAL REFLUX DISEASE
     Route: 065
     Dates: start: 2000, end: 2017
  19. PROTONIX [Suspect]
     Active Substance: PANTOPRAZOLE SODIUM
     Indication: GASTROOESOPHAGEAL REFLUX DISEASE
     Dosage: GENERIC
     Route: 065
     Dates: start: 2000, end: 2017
  20. ACIPHEX [Suspect]
     Active Substance: RABEPRAZOLE SODIUM
     Indication: GASTROOESOPHAGEAL REFLUX DISEASE
     Route: 065
     Dates: start: 2000, end: 2017
  21. CRESTOR [Concomitant]
     Active Substance: ROSUVASTATIN CALCIUM
  22. CLONIDINE. [Concomitant]
     Active Substance: CLONIDINE
  23. FOLIC ACID. [Concomitant]
     Active Substance: FOLIC ACID
  24. METRONIDAZOLE. [Concomitant]
     Active Substance: METRONIDAZOLE
  25. CITALOPRAM [Concomitant]
     Active Substance: CITALOPRAM HYDROBROMIDE
  26. METOPROLOL TARTRATE. [Concomitant]
     Active Substance: METOPROLOL TARTRATE
  27. CELEXA [Concomitant]
     Active Substance: CITALOPRAM HYDROBROMIDE
  28. KLOR?CON [Concomitant]
     Active Substance: POTASSIUM CHLORIDE
  29. BENICAR [Concomitant]
     Active Substance: OLMESARTAN MEDOXOMIL
  30. HYDRALAZINE [Concomitant]
     Active Substance: HYDRALAZINE HYDROCHLORIDE
  31. CIPRO [Concomitant]
     Active Substance: CIPROFLOXACIN HYDROCHLORIDE
     Indication: INFECTION
  32. ALPRAZOLAM. [Concomitant]
     Active Substance: ALPRAZOLAM
  33. CEPHALEXIN. [Concomitant]
     Active Substance: CEPHALEXIN
  34. ACETAMINOPHEN?CODEINE [Concomitant]
     Active Substance: ACETAMINOPHEN\CODEINE PHOSPHATE
  35. CIPROFLOXACIN HYDROCHLORIDE. [Concomitant]
     Active Substance: CIPROFLOXACIN HYDROCHLORIDE
  36. MAGNESIUM OXIDE. [Concomitant]
     Active Substance: MAGNESIUM OXIDE
  37. METHYLPREDNISOLONE. [Concomitant]
     Active Substance: METHYLPREDNISOLONE
  38. GUAIFENESIN. [Concomitant]
     Active Substance: GUAIFENESIN
  39. DOXYCYCLINE HYCLATE. [Concomitant]
     Active Substance: DOXYCYCLINE HYCLATE
  40. PREVACID [Suspect]
     Active Substance: LANSOPRAZOLE
     Indication: GASTROOESOPHAGEAL REFLUX DISEASE
     Route: 065
     Dates: start: 2000, end: 2017
  41. FUROSEMIDE. [Concomitant]
     Active Substance: FUROSEMIDE
     Indication: CARDIAC DISORDER
  42. AMOX TR?K CLV [Concomitant]
     Active Substance: AMOXICILLIN\CLAVULANATE POTASSIUM
  43. SERTRALINE [Concomitant]
     Active Substance: SERTRALINE HYDROCHLORIDE
  44. PROCTO?MED [Concomitant]
  45. KETOCONAZOLE. [Concomitant]
     Active Substance: KETOCONAZOLE
  46. BIOTIN [Concomitant]
     Active Substance: BIOTIN
  47. PRILOSEC [Suspect]
     Active Substance: OMEPRAZOLE MAGNESIUM
     Indication: GASTROOESOPHAGEAL REFLUX DISEASE
     Route: 048
     Dates: start: 2000, end: 2017
  48. NORVASC [Concomitant]
     Active Substance: AMLODIPINE BESYLATE
  49. ELITE [Concomitant]
     Active Substance: ALLANTOIN\LIDOCAINE\PETROLATUM
  50. AZITHROMYCIN ANHYDROUS. [Concomitant]
     Active Substance: AZITHROMYCIN ANHYDROUS
     Indication: INFECTION
  51. DOXYCYCLINE. [Concomitant]
     Active Substance: DOXYCYCLINE
     Indication: INFECTION
  52. OXYBUTYNIN CHLORIDE. [Concomitant]
     Active Substance: OXYBUTYNIN CHLORIDE
  53. CLOBETASOL [Concomitant]
     Active Substance: CLOBETASOL
  54. CLONIDINE HYDROCHLORIDE. [Concomitant]
     Active Substance: CLONIDINE HYDROCHLORIDE
  55. PRILOSEC OTC [Suspect]
     Active Substance: OMEPRAZOLE MAGNESIUM
     Indication: GASTROOESOPHAGEAL REFLUX DISEASE
     Route: 048
     Dates: start: 2000
  56. PRILOSEC OTC [Suspect]
     Active Substance: OMEPRAZOLE MAGNESIUM
     Indication: GASTROOESOPHAGEAL REFLUX DISEASE
     Route: 048
     Dates: start: 2000, end: 2017
  57. SYNTHROID [Concomitant]
     Active Substance: LEVOTHYROXINE SODIUM
  58. RANITIDINE. [Concomitant]
     Active Substance: RANITIDINE
  59. PROBIOTIC [Concomitant]
     Active Substance: PROBIOTICS NOS
     Indication: ABDOMINAL DISCOMFORT
  60. TUMS [Concomitant]
     Active Substance: CALCIUM CARBONATE
  61. FLUVIRIN NOS [Concomitant]
     Active Substance: INFLUENZA VIRUS VACCINE
  62. FLUOROMETHOLONE. [Concomitant]
     Active Substance: FLUOROMETHOLONE
  63. PREDNISONE. [Concomitant]
     Active Substance: PREDNISONE
  64. ACYCLOVIR. [Concomitant]
     Active Substance: ACYCLOVIR
  65. GABAPENTIN. [Concomitant]
     Active Substance: GABAPENTIN
  66. MECLIZINE [Concomitant]
     Active Substance: MECLIZINE HYDROCHLORIDE
  67. PROTONIX [Suspect]
     Active Substance: PANTOPRAZOLE SODIUM
     Indication: GASTROOESOPHAGEAL REFLUX DISEASE
     Route: 065
     Dates: start: 2000
  68. EDARBI [Concomitant]
     Active Substance: AZILSARTAN KAMEDOXOMIL
  69. ATORVASTATIN [Concomitant]
     Active Substance: ATORVASTATIN
  70. METOPROLOL. [Concomitant]
     Active Substance: METOPROLOL
  71. VITAMINS [Concomitant]
     Active Substance: VITAMINS
     Indication: MALNUTRITION
  72. BENZONATATE. [Concomitant]
     Active Substance: BENZONATATE
  73. PREVNAR [Concomitant]
     Active Substance: PNEUMOCOCCAL 7-VALENT CONJUGATE VACCINE (DIPHTHERIA CRM197 PROTEIN)
  74. HYDROCORTISONE. [Concomitant]
     Active Substance: HYDROCORTISONE
  75. FLAGYL [Concomitant]
     Active Substance: METRONIDAZOLE\METRONIDAZOLE HYDROCHLORIDE

REACTIONS (4)
  - Rebound acid hypersecretion [Unknown]
  - Renal injury [Unknown]
  - Renal failure [Unknown]
  - Chronic kidney disease [Not Recovered/Not Resolved]

NARRATIVE: CASE EVENT DATE: 20130130
